FAERS Safety Report 9265692 (Version 1)
Quarter: 2013Q2

REPORT INFORMATION
  Report Type: Report from Study
  Country: CA (occurrence: CA)
  Receive Date: 20130501
  Receipt Date: 20130501
  Transmission Date: 20140414
  Serious: Yes (Hospitalization)
  Sender: FDA-Public Use
  Company Number: CA-JNJFOC-20130414957

PATIENT
  Age: 69 Year
  Sex: Male
  Weight: 51 kg

DRUGS (11)
  1. REMICADE [Suspect]
     Indication: COLITIS ULCERATIVE
     Route: 042
     Dates: start: 201301
  2. TAMSULOSIN HYDROCHLORIDE [Concomitant]
     Route: 065
  3. PANTOPRAZOLE [Concomitant]
     Route: 065
  4. AZATHIOPRINE [Concomitant]
     Route: 065
  5. METOPROLOL [Concomitant]
     Route: 065
  6. RAMIPRIL [Concomitant]
     Route: 065
  7. FERROUS GLUCONATE [Concomitant]
     Route: 065
  8. SALOFALK [Concomitant]
     Route: 065
  9. PREDNISONE [Concomitant]
     Route: 065
  10. ATORVASTATIN [Concomitant]
     Route: 065
  11. FINASTERIDE [Concomitant]
     Route: 065

REACTIONS (2)
  - Pyrexia [Not Recovered/Not Resolved]
  - Asthenia [Not Recovered/Not Resolved]
